FAERS Safety Report 11461290 (Version 1)
Quarter: 2015Q3

REPORT INFORMATION
  Report Type: Spontaneous
  Country: US (occurrence: US)
  Receive Date: 20150831
  Receipt Date: 20150831
  Transmission Date: 20151125
  Serious: No
  Sender: FDA-Public Use
  Company Number: US-ELI_LILLY_AND_COMPANY-US201007000090

PATIENT
  Sex: Male

DRUGS (32)
  1. AMITRIPTYLINE [Concomitant]
     Active Substance: AMITRIPTYLINE
     Dosage: 30 MG, EACH EVENING
  2. LIPITOR [Concomitant]
     Active Substance: ATORVASTATIN CALCIUM
     Dosage: 80 MG, DAILY (1/D)
  3. LISINOPRIL. [Concomitant]
     Active Substance: LISINOPRIL
     Dosage: 2.5 MG, 2/D
  4. COUMADIN [Concomitant]
     Active Substance: WARFARIN SODIUM
     Dosage: 2.5 MG, 4/W
  5. SINGULAIR [Concomitant]
     Active Substance: MONTELUKAST SODIUM
     Dosage: 10 MG, EACH EVENING
  6. VITAMIN C [Concomitant]
     Active Substance: ASCORBIC ACID
  7. CYMBALTA [Suspect]
     Active Substance: DULOXETINE HYDROCHLORIDE
     Dosage: 60 MG, UNK
  8. VITAMIN D [Concomitant]
     Active Substance: CHOLECALCIFEROL
     Dosage: 50000 IU, DAILY (1/D)
  9. ASPIRIN. [Concomitant]
     Active Substance: ASPIRIN
     Dosage: 81 MG, DAILY (1/D)
  10. NEURONTIN [Concomitant]
     Active Substance: GABAPENTIN
     Dosage: 400 MG, 3/D
  11. GLIMEPIRIDE. [Concomitant]
     Active Substance: GLIMEPIRIDE
     Dosage: 2 MG, DAILY AS NEEDED
  12. DIPHENHYDRAMINE HYDROCHLORIDE. [Concomitant]
     Active Substance: DIPHENHYDRAMINE HYDROCHLORIDE
     Dosage: UNK, AS NEEDED
  13. KCL [Concomitant]
     Active Substance: POTASSIUM CHLORIDE
     Dosage: 10 MEQ, DAILY (1/D)
  14. FISH OIL [Concomitant]
     Active Substance: FISH OIL
     Dosage: 2000 UNK, DAILY (1/D)
  15. SPIRONOLACTONE. [Concomitant]
     Active Substance: SPIRONOLACTONE
     Dosage: 12.5 MG, QOD
  16. RESTASIS [Concomitant]
     Active Substance: CYCLOSPORINE
     Dosage: 0.05 %, 2/D
  17. NITROGLYCERIN. [Concomitant]
     Active Substance: NITROGLYCERIN
     Dosage: 2.5 MG, DAILY (1/D)
     Route: 062
  18. KETOCONAZOLE. [Concomitant]
     Active Substance: KETOCONAZOLE
     Dosage: 2 % CREAM, 2/D
     Route: 062
  19. LASIX [Concomitant]
     Active Substance: FUROSEMIDE
     Dosage: 20 MG, DAILY (1/D)
  20. DARVOCET-N 100 [Concomitant]
     Active Substance: ACETAMINOPHEN\PROPOXYPHENE NAPSYLATE
  21. ZYRTEC [Concomitant]
     Active Substance: CETIRIZINE HYDROCHLORIDE
     Dosage: 10 MG, UNK
  22. METOPROLOL [Concomitant]
     Active Substance: METOPROLOL
     Dosage: 25 MG, 2/D
  23. DIGOXIN. [Concomitant]
     Active Substance: DIGOXIN
     Dosage: 0.125 MG, DAILY (1/D)
  24. IBUPROFEN. [Concomitant]
     Active Substance: IBUPROFEN
     Dosage: 200 MG, 2/D
  25. SLO-NIACIN [Concomitant]
     Active Substance: DIETARY SUPPLEMENT
     Dosage: 1000 MG, 2/D
  26. NITROGLYCERINE [Concomitant]
     Active Substance: NITROGLYCERIN
     Dosage: MG/HR  12 HRS DAILY
     Route: 062
  27. NASONEX [Concomitant]
     Active Substance: MOMETASONE FUROATE
  28. ZEMPLAR [Concomitant]
     Active Substance: PARICALCITOL
     Dosage: 1 NG, UNK
  29. TYLENOL PM [Concomitant]
     Active Substance: ACETAMINOPHEN\DIPHENHYDRAMINE
     Dosage: UNK, AS NEEDED
  30. CALCITROL [Concomitant]
     Active Substance: CALCITRIOL
     Dosage: 0.25 UG, UNK
  31. TRILIPIX [Concomitant]
     Active Substance: FENOFIBRIC ACID
     Dosage: 135 MG, DAILY (1/D)
  32. PRILOSEC [Concomitant]
     Active Substance: OMEPRAZOLE MAGNESIUM
     Dosage: 20 MG, DAILY (1/D)

REACTIONS (2)
  - Influenza [Unknown]
  - Influenza like illness [Unknown]
